FAERS Safety Report 15067676 (Version 1)
Quarter: 2018Q2

REPORT INFORMATION
  Report Type: Spontaneous
  Country: US (occurrence: US)
  Receive Date: 20180626
  Receipt Date: 20180626
  Transmission Date: 20180711
  Serious: Yes (Other)
  Sender: FDA-Public Use
  Company Number: US-PFIZER INC-2018254519

PATIENT
  Age: 64 Year
  Sex: Male
  Weight: 72 kg

DRUGS (2)
  1. LORTAB [Suspect]
     Active Substance: ACETAMINOPHEN\HYDROCODONE BITARTRATE
     Indication: PAIN
     Dosage: 1 DF, AS NEEDED (ONE TABLET EVERY 6 HOURS AS NEEDED [HYDROCODONE 7.5 MG/PARACETAMOL 325 MG ]
  2. CELECOXIB. [Suspect]
     Active Substance: CELECOXIB
     Indication: PAIN
     Dosage: 200 MG, AS NEEDED (1 CAPSULE BY MOUTH TWICE A DAY AS NEEDED FOR PAIN. 1 IN MORNING AND 1 AT NIGHT)
     Route: 048

REACTIONS (4)
  - Fall [Unknown]
  - Clavicle fracture [Not Recovered/Not Resolved]
  - Nausea [Not Recovered/Not Resolved]
  - Pain [Not Recovered/Not Resolved]

NARRATIVE: CASE EVENT DATE: 20180618
